FAERS Safety Report 9012910 (Version 1)
Quarter: 2013Q1

REPORT INFORMATION
  Report Type: Spontaneous
  Country: US (occurrence: US)
  Receive Date: 20130114
  Receipt Date: 20130114
  Transmission Date: 20140127
  Serious: No
  Sender: FDA-Public Use
  Company Number: US-BAYER-2013-004430

PATIENT
  Age: 42 Year
  Sex: Female

DRUGS (1)
  1. CLIMARA PRO [Suspect]
     Indication: HYSTERECTOMY
     Dosage: UNK
     Route: 062
     Dates: start: 20121119

REACTIONS (3)
  - Product adhesion issue [None]
  - Contraindication to medical treatment [None]
  - Off label use [None]
